FAERS Safety Report 15707161 (Version 1)
Quarter: 2018Q4

REPORT INFORMATION
  Report Type: Spontaneous
  Country: TJ (occurrence: TJ)
  Receive Date: 20181210
  Receipt Date: 20181210
  Transmission Date: 20190205
  Serious: Yes (Death, Other)
  Sender: FDA-Public Use
  Company Number: TJ-BRISTOL-MYERS SQUIBB COMPANY-BMS-2018-113602

PATIENT
  Sex: Male

DRUGS (2)
  1. EUPHYLLIN /00003701/ [Suspect]
     Active Substance: AMINOPHYLLINE
     Indication: DEATH
     Route: 065
  2. SPRYCEL [Suspect]
     Active Substance: DASATINIB
     Indication: CHRONIC MYELOID LEUKAEMIA
     Dosage: 140 MG, UNK
     Route: 065

REACTIONS (1)
  - Anaphylactic shock [Fatal]
